FAERS Safety Report 20345176 (Version 8)
Quarter: 2022Q2

REPORT INFORMATION
  Report Type: Spontaneous
  Country: US (occurrence: US)
  Receive Date: 20220118
  Receipt Date: 20220520
  Transmission Date: 20220721
  Serious: Yes (Hospitalization, Other)
  Sender: FDA-Public Use
  Company Number: US-SA-SAC20220114000276

PATIENT
  Age: 22 Year
  Sex: Male

DRUGS (2)
  1. AUBAGIO [Suspect]
     Active Substance: TERIFLUNOMIDE
     Indication: Multiple sclerosis
     Dosage: 14 MG, QD
     Route: 048
     Dates: start: 20211101
  2. AUBAGIO [Suspect]
     Active Substance: TERIFLUNOMIDE
     Dosage: 14 MG, QD
     Route: 048
     Dates: start: 20220125

REACTIONS (19)
  - Loss of consciousness [Unknown]
  - Bipolar disorder [Unknown]
  - Back pain [Unknown]
  - Myalgia [Unknown]
  - Fatigue [Unknown]
  - Memory impairment [Unknown]
  - Mood altered [Unknown]
  - Dysphemia [Unknown]
  - Hyperhidrosis [Unknown]
  - Cold sweat [Unknown]
  - Mood swings [Unknown]
  - Condition aggravated [Unknown]
  - Eye movement disorder [Unknown]
  - Vision blurred [Unknown]
  - Neck pain [Unknown]
  - Irritability [Unknown]
  - Headache [Unknown]
  - Abnormal behaviour [Unknown]
  - Product dose omission in error [Unknown]

NARRATIVE: CASE EVENT DATE: 20220101
